FAERS Safety Report 20896167 (Version 1)
Quarter: 2022Q2

REPORT INFORMATION
  Report Type: Spontaneous
  Country: SD (occurrence: SD)
  Receive Date: 20220531
  Receipt Date: 20220531
  Transmission Date: 20220721
  Serious: No
  Sender: FDA-Public Use
  Company Number: SD-LUPIN PHARMACEUTICALS INC.-2022-07654

PATIENT
  Age: 78 Year
  Sex: Male

DRUGS (12)
  1. AZITHROMYCIN [Suspect]
     Active Substance: AZITHROMYCIN
     Indication: COVID-19
     Dosage: 500 MG, QD
     Route: 065
     Dates: start: 20201208
  2. ALBUTEROL SULFATE [Suspect]
     Active Substance: ALBUTEROL SULFATE
     Indication: COVID-19
     Dosage: UNK (NEBULISATION)
     Route: 065
     Dates: start: 20201208
  3. REMDESIVIR [Suspect]
     Active Substance: REMDESIVIR
     Indication: COVID-19
     Dosage: 200 MG (LOADING DOSE; FOLLOWED BY 100MG OD FOR 10 DAYS (PLANNED))
     Route: 065
     Dates: start: 20201208
  4. MEROPENEM [Suspect]
     Active Substance: MEROPENEM
     Indication: COVID-19
     Dosage: 1 GRAM
     Route: 065
     Dates: start: 20201208
  5. DEXAMETHASONE [Suspect]
     Active Substance: DEXAMETHASONE
     Indication: COVID-19
     Dosage: 6 MG, QD
     Route: 065
     Dates: start: 20201208
  6. IPRATROPIUM [Suspect]
     Active Substance: IPRATROPIUM
     Indication: COVID-19
     Dosage: NEBULISATION
     Route: 065
     Dates: start: 20201208
  7. PULMICORT TURBUHALER [Suspect]
     Active Substance: BUDESONIDE
     Indication: COVID-19
     Dosage: 0.5 GRAM (NEBULISATION)
     Route: 065
     Dates: start: 20201208
  8. ENOXAPARIN [Concomitant]
     Active Substance: ENOXAPARIN
     Indication: COVID-19
     Dosage: 40 MG
     Route: 058
     Dates: start: 20201208
  9. ACETAMINOPHEN [Concomitant]
     Active Substance: ACETAMINOPHEN
     Indication: COVID-19
     Dosage: SOS
     Route: 065
     Dates: start: 20201208
  10. PANTOPRAZOLE [Concomitant]
     Active Substance: PANTOPRAZOLE
     Indication: COVID-19
     Dosage: 40 MG, QD
     Route: 065
     Dates: start: 20201208
  11. VITAMIN C [Concomitant]
     Active Substance: ASCORBIC ACID
     Indication: COVID-19
     Dosage: 1000 MG, QD
     Route: 065
     Dates: start: 20201208
  12. ZINC SULFATE [Concomitant]
     Active Substance: ZINC SULFATE
     Indication: COVID-19
     Dosage: 15 MG, QD
     Route: 065
     Dates: start: 20201208

REACTIONS (1)
  - Off label use [Unknown]
